FAERS Safety Report 6699814-7 (Version None)
Quarter: 2010Q2

REPORT INFORMATION
  Report Type: 
  Country: None (occurrence: None)
  Receive Date: 20100428
  Receipt Date: 20090331
  Transmission Date: 20101027
  Serious: No
  Sender: FDA-Public Use
  Company Number: A0829549A

PATIENT
  Age: 55 Year
  Sex: Female
  Weight: 63 kg

DRUGS (4)
  1. LUXIQ [Suspect]
     Dosage: 0PCT TWICE PER DAY
     Route: 061
     Dates: start: 20090201
  2. LUXIQ [Suspect]
     Dosage: 0PCT TWICE PER DAY
     Route: 061
     Dates: start: 20090201
  3. ZYRTEC [Concomitant]
     Indication: SEASONAL ALLERGY
  4. BIRTH CONTROL PILLS [Concomitant]
     Indication: CONTRACEPTION
     Route: 048

REACTIONS (1)
  - DRUG INEFFECTIVE [None]
